FAERS Safety Report 9617386 (Version 2)
Quarter: 2013Q4

REPORT INFORMATION
  Report Type: Spontaneous
  Country: US (occurrence: US)
  Receive Date: 20131011
  Receipt Date: 20131011
  Transmission Date: 20140711
  Serious: Yes (Death)
  Sender: FDA-Public Use
  Company Number: US-SA-RENA-1002113

PATIENT
  Age: 65 Year
  Sex: Female

DRUGS (11)
  1. RENVELA [Suspect]
     Indication: HYPERPHOSPHATAEMIA
     Route: 065
     Dates: start: 201304
  2. SENSIPAR [Concomitant]
  3. CELEXA [Concomitant]
  4. SINEMET [Concomitant]
  5. REQUIP [Concomitant]
  6. ADVAIR [Concomitant]
  7. LASIX [Concomitant]
  8. INSULIN [Concomitant]
  9. ZETIA [Concomitant]
  10. ACETYLSALICYLIC ACID [Concomitant]
  11. LIPITOR [Concomitant]

REACTIONS (1)
  - Gastrointestinal haemorrhage [Fatal]
